FAERS Safety Report 8769855 (Version 1)
Quarter: 2012Q4

REPORT INFORMATION
  Report Type: 
  Country: US (occurrence: US)
  Receive Date: 20120905
  Receipt Date: 20120905
  Transmission Date: 20130627
  Serious: Yes (Other)
  Sender: FDA-Public Use
  Company Number: US-009507513-1209USA000204

PATIENT

DRUGS (3)
  1. TEMODAR [Suspect]
     Indication: NEOPLASM
     Dosage: 100 mg/m2, UNK
     Route: 048
  2. TEMSIROLIMUS [Suspect]
     Indication: NEOPLASM
     Dosage: UNK
     Route: 042
  3. IRINOTECAN HYDROCHLORIDE [Suspect]
     Indication: NEOPLASM
     Dosage: 50 mg/m2, UNK
     Route: 048

REACTIONS (12)
  - Hypokalaemia [Unknown]
  - Neutropenia [Unknown]
  - Lymphopenia [Unknown]
  - Anaemia [Unknown]
  - Leukopenia [Unknown]
  - Thrombocytopenia [Unknown]
  - Nausea [Unknown]
  - Vomiting [Unknown]
  - Hypophosphataemia [Unknown]
  - Diarrhoea [Unknown]
  - Transaminases increased [Unknown]
  - Infection [Unknown]
